FAERS Safety Report 18716606 (Version 1)
Quarter: 2021Q1

REPORT INFORMATION
  Report Type: Spontaneous
  Country: US (occurrence: US)
  Receive Date: 20210108
  Receipt Date: 20210108
  Transmission Date: 20210419
  Serious: No
  Sender: FDA-Public Use
  Company Number: US-MYLANLABS-2020M1102960

PATIENT
  Sex: Female
  Weight: 94 kg

DRUGS (1)
  1. WIXELA INHUB [Suspect]
     Active Substance: FLUTICASONE PROPIONATE\SALMETEROL XINAFOATE
     Indication: BRONCHITIS CHRONIC
     Dosage: 250/50 MICROGRAM BID
     Route: 055

REACTIONS (2)
  - Device issue [Not Recovered/Not Resolved]
  - Expired product administered [Unknown]
